FAERS Safety Report 20947433 (Version 16)
Quarter: 2022Q4

REPORT INFORMATION
  Report Type: Report from Study
  Country: BR (occurrence: None)
  Receive Date: 20220610
  Receipt Date: 20221220
  Transmission Date: 20230112
  Serious: Yes (Life-Threatening, Hospitalization)
  Sender: FDA-Public Use
  Company Number: BR-ROCHE-3110953

PATIENT
  Age: 42 Year
  Sex: Female
  Weight: 76 kg

DRUGS (33)
  1. TIRAGOLUMAB [Suspect]
     Active Substance: TIRAGOLUMAB
     Indication: Cervix carcinoma
     Dosage: ON 19/MAY/2022, PATIENT RECEIVE THE MOST RECENT DOSE OF STUDY DRUG TIRAGOLUMAB (600 MG) PRIOR TO (AE
     Route: 042
     Dates: start: 20201001
  2. ATEZOLIZUMAB [Suspect]
     Active Substance: ATEZOLIZUMAB
     Indication: Cervix carcinoma
     Dosage: RESPONSE TO THIS CASE REPORT AT THIS TIME.?ADDITIONAL INFORMATION WAS RECEIVED ON 12/OCT/2022. THE
     Route: 041
     Dates: start: 20201001
  3. DESOGESTREL [Concomitant]
     Active Substance: DESOGESTREL
     Indication: Contraception
     Route: 048
     Dates: start: 20200827
  4. LEVOTHYROXINE [Concomitant]
     Active Substance: LEVOTHYROXINE
     Indication: Hypothyroidism
     Route: 048
     Dates: start: 20220113, end: 20220618
  5. PREDNISONE [Concomitant]
     Active Substance: PREDNISONE
     Indication: Cough
     Route: 048
     Dates: start: 20220502, end: 20220506
  6. PREDNISONE [Concomitant]
     Active Substance: PREDNISONE
     Route: 048
     Dates: start: 20220427, end: 20220501
  7. INVESTIGATIONAL PRODUCT [Concomitant]
     Active Substance: INVESTIGATIONAL PRODUCT
     Indication: COVID-19 prophylaxis
     Dosage: 1 AMPOULE
     Route: 030
     Dates: start: 20220512, end: 20220512
  8. CEFTRIAXONE [Concomitant]
     Active Substance: CEFTRIAXONE
     Indication: Sepsis
     Route: 042
     Dates: start: 20220531, end: 20220606
  9. METRONIDAZOLE [Concomitant]
     Active Substance: METRONIDAZOLE
     Indication: Sepsis
     Route: 042
     Dates: start: 20220531, end: 20220606
  10. BACTRIM [Concomitant]
     Active Substance: SULFAMETHOXAZOLE\TRIMETHOPRIM
     Indication: Sepsis
     Route: 048
     Dates: start: 20220606, end: 20220616
  11. SALINE [Concomitant]
     Active Substance: SODIUM CHLORIDE
     Indication: Hyperglycaemia
     Route: 042
     Dates: start: 20220608, end: 20220611
  12. ONDANSETRON [Concomitant]
     Active Substance: ONDANSETRON
     Indication: Vomiting
     Route: 042
     Dates: start: 20220608, end: 20220608
  13. DIAZEPAM [Concomitant]
     Active Substance: DIAZEPAM
     Indication: Anxiety
     Route: 042
     Dates: start: 20220608, end: 20220608
  14. OMEPRAZOLE [Concomitant]
     Active Substance: OMEPRAZOLE
     Indication: Gastritis
     Route: 042
     Dates: start: 20220609, end: 20220615
  15. SODIUM BICARBONATE [Concomitant]
     Active Substance: SODIUM BICARBONATE
     Indication: Hyperglycaemia
     Route: 042
     Dates: start: 20220608, end: 20220608
  16. ENOXAPARIN [Concomitant]
     Active Substance: ENOXAPARIN
     Route: 058
     Dates: start: 20220609, end: 20220615
  17. INSULIN NOS [Concomitant]
     Active Substance: INSULIN NOS
     Indication: Hyperglycaemia
     Route: 030
     Dates: start: 20220531, end: 20220606
  18. INSULIN NOS [Concomitant]
     Active Substance: INSULIN NOS
     Indication: Diabetes mellitus
     Route: 058
     Dates: start: 20220617, end: 20220901
  19. INSULIN NOS [Concomitant]
     Active Substance: INSULIN NOS
     Route: 058
     Dates: start: 20220617, end: 20220901
  20. DEXTROSE [Concomitant]
     Active Substance: DEXTROSE
     Indication: Hyperglycaemia
     Route: 042
     Dates: start: 20220609, end: 20220609
  21. DEXTROSE [Concomitant]
     Active Substance: DEXTROSE
     Route: 042
     Dates: start: 20220610, end: 20220610
  22. INSULIN NOS [Concomitant]
     Active Substance: INSULIN NOS
     Indication: Hyperglycaemia
     Route: 058
     Dates: start: 20220609, end: 20220609
  23. INSULIN NOS [Concomitant]
     Active Substance: INSULIN NOS
     Indication: Diabetes mellitus
     Route: 058
     Dates: start: 20220613, end: 20220616
  24. POTASSIUM CHLORIDE [Concomitant]
     Active Substance: POTASSIUM CHLORIDE
     Indication: Blood potassium decreased
     Route: 042
     Dates: start: 20220609, end: 20220609
  25. POTASSIUM CHLORIDE [Concomitant]
     Active Substance: POTASSIUM CHLORIDE
     Indication: Diabetes mellitus
     Route: 042
     Dates: start: 20220613, end: 20220615
  26. DEXTROSE [Concomitant]
     Active Substance: DEXTROSE
     Dosage: 3 AMPULE
     Route: 058
     Dates: start: 20220612, end: 20220612
  27. PIPERACILLIN SODIUM\TAZOBACTAM SODIUM [Concomitant]
     Active Substance: PIPERACILLIN SODIUM\TAZOBACTAM SODIUM
     Indication: Hyperglycaemia
     Route: 042
     Dates: start: 20220608, end: 20220609
  28. PIPERACILLIN SODIUM\TAZOBACTAM SODIUM [Concomitant]
     Active Substance: PIPERACILLIN SODIUM\TAZOBACTAM SODIUM
     Indication: Pulmonary sepsis
  29. XIGDUO XR [Concomitant]
     Active Substance: DAPAGLIFLOZIN PROPANEDIOL\METFORMIN HYDROCHLORIDE
     Indication: Hyperglycaemia
     Route: 048
     Dates: start: 20220606, end: 20220608
  30. INSULIN HUMAN [Concomitant]
     Active Substance: INSULIN HUMAN
     Indication: Diabetes mellitus
     Dosage: MEDICATION DOSE: 20IU
     Route: 058
     Dates: start: 20220617
  31. INSULIN HUMAN [Concomitant]
     Active Substance: INSULIN HUMAN
     Dosage: MEDICATION DOSE: 8 IU
     Route: 058
     Dates: start: 20220617
  32. INSULIN HUMAN [Concomitant]
     Active Substance: INSULIN HUMAN
     Dosage: MEDICATION DOSE: 14 IU
     Route: 058
     Dates: start: 20220617
  33. PIOGLITAZONE HYDROCHLORIDE [Concomitant]
     Active Substance: PIOGLITAZONE HYDROCHLORIDE
     Indication: Diabetes mellitus
     Route: 048
     Dates: start: 20221108

REACTIONS (4)
  - Electrolyte imbalance [Recovered/Resolved]
  - Diabetes mellitus [Not Recovered/Not Resolved]
  - Pulmonary sepsis [Recovered/Resolved]
  - Abdominal sepsis [Recovered/Resolved]

NARRATIVE: CASE EVENT DATE: 20220528
